FAERS Safety Report 7460614-1 (Version None)
Quarter: 2011Q2

REPORT INFORMATION
  Report Type: 
  Country: None (occurrence: None)
  Receive Date: 20110421
  Receipt Date: 20110312
  Transmission Date: 20111010
  Serious: Yes (Other)
  Sender: FDA-Public Use
  Company Number: AEUSA201100095

PATIENT
  Age: 74 Year
  Sex: Female

DRUGS (1)
  1. GAMUNEX [Suspect]
     Indication: POLYNEUROPATHY
     Dosage: IV
     Route: 042
     Dates: start: 20101101

REACTIONS (1)
  - HEPATITIS C [None]
